FAERS Safety Report 5254086-5 (Version None)
Quarter: 2007Q1

REPORT INFORMATION
  Report Type: 
  Country: None (occurrence: None)
  Receive Date: 20070302
  Receipt Date: 20070219
  Transmission Date: 20070707
  Serious: Yes (Other)
  Sender: FDA-Public Use
  Company Number: PHEH2007US02209

PATIENT
  Age: 42 Year
  Sex: Male

DRUGS (2)
  1. AVASTIN [Suspect]
  2. ZOMETA [Suspect]
     Indication: METASTASES TO BONE
     Dosage: 4MG QMO
     Route: 042
     Dates: start: 20060901

REACTIONS (3)
  - BONE DISORDER [None]
  - DRUG INTERACTION [None]
  - OSTEONECROSIS [None]
